FAERS Safety Report 10625443 (Version 1)
Quarter: 2014Q4

REPORT INFORMATION
  Report Type: Spontaneous
  Country: GB (occurrence: None)
  Receive Date: 20141201
  Receipt Date: 20141201
  Transmission Date: 20150529
  Serious: Yes (Life-Threatening)
  Sender: FDA-Public Use
  Company Number: 2640442

PATIENT
  Age: 47 Year
  Sex: Male

DRUGS (3)
  1. ROCURONIUM BROMIDE. [Suspect]
     Active Substance: ROCURONIUM BROMIDE
     Indication: ENDOTRACHEAL INTUBATION
  2. PROPOFOL. [Concomitant]
     Active Substance: PROPOFOL
  3. FENTANYL. [Concomitant]
     Active Substance: FENTANYL

REACTIONS (4)
  - Pulseless electrical activity [None]
  - Anaphylactic reaction [None]
  - Cardio-respiratory arrest [None]
  - Multi-organ failure [None]
